FAERS Safety Report 12266279 (Version 1)
Quarter: 2016Q2

REPORT INFORMATION
  Report Type: Spontaneous
  Country: US (occurrence: None)
  Receive Date: 20160413
  Receipt Date: 20160413
  Transmission Date: 20160815
  Serious: Yes (Other)
  Sender: FDA-Public Use
  Company Number: None

PATIENT
  Age: 59 Year
  Sex: Female

DRUGS (2)
  1. RASUVO [Suspect]
     Active Substance: METHOTREXATE SODIUM
     Indication: RHEUMATOID ARTHRITIS
     Dosage: 15MG/0.3ML QWEEKLY SUBQ
     Route: 058
     Dates: start: 20160229
  2. RASUVO [Suspect]
     Active Substance: METHOTREXATE SODIUM
     Indication: PSORIATIC ARTHROPATHY
     Dosage: 15MG/0.3ML QWEEKLY SUBQ
     Route: 058
     Dates: start: 20160229

REACTIONS (4)
  - Arthralgia [None]
  - Device malfunction [None]
  - Musculoskeletal stiffness [None]
  - Gait disturbance [None]

NARRATIVE: CASE EVENT DATE: 20160411
